FAERS Safety Report 6733573-4 (Version None)
Quarter: 2010Q2

REPORT INFORMATION
  Report Type: 
  Country: None (occurrence: None)
  Receive Date: 20100520
  Receipt Date: 20100518
  Transmission Date: 20101027
  Serious: Yes (Hospitalization)
  Sender: FDA-Public Use
  Company Number: FR-SANOFI-AVENTIS-2010SA028403

PATIENT
  Age: 65 Year
  Sex: Female
  Weight: 53 kg

DRUGS (6)
  1. RIFADIN [Suspect]
     Indication: STREPTOCOCCAL INFECTION
     Route: 042
     Dates: start: 20100320, end: 20100326
  2. IMUREL [Suspect]
     Indication: CROHN'S DISEASE
     Dosage: DOSE:2 UNIT(S)
     Route: 048
     Dates: start: 20100321, end: 20100321
  3. REMICADE [Suspect]
     Indication: CROHN'S DISEASE
     Route: 042
     Dates: start: 20100319, end: 20100319
  4. CORTANCYL [Concomitant]
     Route: 048
  5. PLAQUENIL [Concomitant]
     Route: 048
  6. CORDARONE [Concomitant]
     Route: 065

REACTIONS (1)
  - PANCREATITIS ACUTE [None]
